FAERS Safety Report 8917423 (Version 2)
Quarter: 2014Q2

REPORT INFORMATION
  Report Type: Spontaneous
  Country: GB (occurrence: GB)
  Receive Date: 20121120
  Receipt Date: 20131018
  Transmission Date: 20141212
  Serious: Yes (Disabling)
  Sender: FDA-Public Use
  Company Number: GB-PFIZER INC-2012286649

PATIENT
  Age: 60 Year
  Sex: Female

DRUGS (4)
  1. DEPO-MEDRONE [Suspect]
     Indication: PERIARTHRITIS
     Dosage: 40 MG
  2. LIDOCAINE [Suspect]
     Indication: PERIARTHRITIS
     Dosage: 4ML
  3. ZAPONEX [Suspect]
     Dosage: 650MG
     Route: 048
     Dates: start: 20040810
  4. ZAPONEX [Suspect]
     Dosage: UNK
     Dates: start: 201209

REACTIONS (3)
  - Malaise [Unknown]
  - Nausea [Unknown]
  - Vomiting [Unknown]
